FAERS Safety Report 7544105-5 (Version None)
Quarter: 2011Q2

REPORT INFORMATION
  Report Type: 
  Country: None (occurrence: None)
  Receive Date: 20110613
  Receipt Date: 20051228
  Transmission Date: 20111010
  Serious: Yes (Hospitalization)
  Sender: FDA-Public Use
  Company Number: PHNU2005PL04299

PATIENT
  Sex: Male
  Weight: 108 kg

DRUGS (2)
  1. SIMVASTATIN [Suspect]
     Dosage: 20 MG, QD
     Route: 065
     Dates: start: 20050702
  2. FLUVASTATIN SODIUM [Suspect]
     Dosage: 80 MG, QD
     Route: 048
     Dates: start: 20050527, end: 20050701

REACTIONS (2)
  - SLEEP DISORDER [None]
  - IRRITABILITY [None]
